FAERS Safety Report 12754386 (Version 2)
Quarter: 2016Q4

REPORT INFORMATION
  Report Type: Report from Study
  Country: CO (occurrence: CO)
  Receive Date: 20160916
  Receipt Date: 20161019
  Transmission Date: 20170207
  Serious: Yes (Hospitalization, Other)
  Sender: FDA-Public Use
  Company Number: PHHY2016CO127397

PATIENT
  Sex: Female
  Weight: 86 kg

DRUGS (1)
  1. SANDOSTATIN [Suspect]
     Active Substance: OCTREOTIDE ACETATE
     Indication: NEUROENDOCRINE TUMOUR
     Dosage: 0.3 MG, Q8H
     Route: 058
     Dates: start: 20160907, end: 20160910

REACTIONS (6)
  - Hypogammaglobulinaemia [Unknown]
  - Haematemesis [Recovered/Resolved]
  - Dizziness [Recovered/Resolved]
  - Pyrexia [Recovered/Resolved]
  - Arthralgia [Recovered/Resolved]
  - Inflammatory marker increased [Unknown]
